FAERS Safety Report 25822506 (Version 2)
Quarter: 2025Q4

REPORT INFORMATION
  Report Type: Spontaneous
  Country: RU (occurrence: RU)
  Receive Date: 20250919
  Receipt Date: 20251003
  Transmission Date: 20260118
  Serious: Yes (Other)
  Sender: RANBAXY
  Company Number: RU-SUN PHARMACEUTICAL INDUSTRIES LTD-2025R1-526716

PATIENT
  Age: 18 Year
  Sex: Male
  Weight: 85 kg

DRUGS (2)
  1. SOTRET [Suspect]
     Active Substance: ISOTRETINOIN
     Indication: Acne
     Dosage: 40 MILLIGRAM, DAILY
     Route: 065
     Dates: start: 20240111, end: 20241014
  2. HEPTRAL [Concomitant]
     Active Substance: ADEMETIONINE
     Indication: Product used for unknown indication
     Dosage: 400 MILLIGRAM, 2 DOSE
     Route: 065

REACTIONS (3)
  - Blood creatinine increased [Unknown]
  - Alanine aminotransferase increased [Unknown]
  - Aspartate aminotransferase increased [Unknown]
